FAERS Safety Report 8054279-8 (Version None)
Quarter: 2012Q1

REPORT INFORMATION
  Report Type: 
  Country: None (occurrence: None)
  Receive Date: 20120118
  Receipt Date: 20120111
  Transmission Date: 20120608
  Serious: Yes (Other)
  Sender: FDA-Public Use
  Company Number: PHHY2011CA40360

PATIENT
  Sex: Female

DRUGS (4)
  1. PREDNISONE [Concomitant]
     Indication: PRURITUS
  2. ZOMETA [Suspect]
     Indication: LUNG NEOPLASM MALIGNANT
     Dosage: 4 MG, EVERY 4 WEEKS
     Route: 042
     Dates: start: 20110505
  3. TARCEVA [Suspect]
  4. CHEMOTHERAPEUTICS [Concomitant]

REACTIONS (9)
  - LOWER RESPIRATORY TRACT INFECTION [None]
  - BREATH SOUNDS ABNORMAL [None]
  - COUGH [None]
  - BLOOD PRESSURE INCREASED [None]
  - BACK PAIN [None]
  - RASH ERYTHEMATOUS [None]
  - PRURITUS [None]
  - DIARRHOEA [None]
  - RASH [None]
